FAERS Safety Report 5596946-1 (Version None)
Quarter: 2007Q4

REPORT INFORMATION
  Report Type: 
  Country: None (occurrence: None)
  Receive Date: 20071220
  Receipt Date: 20070212
  Transmission Date: 20080405
  Serious: Yes (Other)
  Sender: FDA-Public Use
  Company Number: ENTC2007-0034

PATIENT

DRUGS (2)
  1. STALEVO 100 [Suspect]
     Indication: RESTLESS LEGS SYNDROME
     Dosage: 50 MG QPM, ORAL
     Route: 048
     Dates: start: 20060901
  2. BROMOCRIPTINE MESYLATE [Concomitant]

REACTIONS (1)
  - SUPRAVENTRICULAR EXTRASYSTOLES [None]
